FAERS Safety Report 5409235-2 (Version None)
Quarter: 2007Q3

REPORT INFORMATION
  Report Type: 
  Country: None (occurrence: None)
  Receive Date: 20070809
  Receipt Date: 20070729
  Transmission Date: 20080115
  Serious: Yes (Hospitalization)
  Sender: FDA-Public Use
  Company Number: PHEH2007US10525

PATIENT
  Age: 14 Year
  Sex: Male

DRUGS (1)
  1. FOCALIN XR [Suspect]

REACTIONS (3)
  - ABDOMINAL PAIN [None]
  - CYCLIC VOMITING SYNDROME [None]
  - WEIGHT DECREASED [None]
